FAERS Safety Report 17273513 (Version 1)
Quarter: 2020Q1

REPORT INFORMATION
  Report Type: Spontaneous
  Country: CN (occurrence: CN)
  Receive Date: 20200115
  Receipt Date: 20200115
  Transmission Date: 20200409
  Serious: Yes (Other)
  Sender: FDA-Public Use
  Company Number: CN-PFIZER INC-2020011449

PATIENT
  Age: 16 Year
  Sex: Female
  Weight: 64.3 kg

DRUGS (11)
  1. HOMOHARRINGTONINE [Suspect]
     Active Substance: OMACETAXINE MEPESUCCINATE
     Indication: ACUTE LEUKAEMIA
     Dosage: 4 MG, 1X/DAY
     Route: 041
     Dates: start: 20191223
  2. NORMAL SALINE [Concomitant]
     Active Substance: SODIUM CHLORIDE
     Dosage: 100 ML, 1X/DAY
     Route: 041
     Dates: start: 20191223, end: 20191228
  3. NORMAL SALINE [Concomitant]
     Active Substance: SODIUM CHLORIDE
     Dosage: 250 ML, 1X/DAY
     Route: 041
     Dates: start: 20191223, end: 20191227
  4. LI QUAN [Suspect]
     Active Substance: TORSEMIDE
     Indication: POLYURIA
     Dosage: 10 MG, 1X/DAY
     Route: 040
     Dates: start: 20191223
  5. NORMAL SALINE [Concomitant]
     Active Substance: SODIUM CHLORIDE
     Indication: VEHICLE SOLUTION USE
     Dosage: 500 ML, 2X/DAY
     Route: 041
     Dates: start: 20191223, end: 20191229
  6. CYTARABINE. [Suspect]
     Active Substance: CYTARABINE
     Indication: ACUTE LEUKAEMIA
     Dosage: 100 MG, 2X/DAY
     Route: 041
     Dates: start: 20191223
  7. PAN LI SU [Suspect]
     Active Substance: PANTOPRAZOLE SODIUM
     Indication: GASTRITIS PROPHYLAXIS
     Dosage: 40 MG, 1X/DAY
     Route: 041
     Dates: start: 20191223
  8. GLUCOSE INJECTION [Concomitant]
     Active Substance: DEXTROSE
     Indication: VEHICLE SOLUTION USE
     Dosage: 250 ML, 1X/DAY
     Route: 041
     Dates: start: 20191223, end: 20191229
  9. ACLARUBICIN HYDROCHLORIDE [Suspect]
     Active Substance: ACLARUBICIN HYDROCHLORIDE
     Indication: ACUTE LEUKAEMIA
     Dosage: 20 MG, 1X/DAY
     Route: 041
     Dates: start: 20191223
  10. NORMAL SALINE [Concomitant]
     Active Substance: SODIUM CHLORIDE
     Dosage: 100 ML, 1X/DAY
     Route: 041
     Dates: start: 20191223, end: 20191229
  11. WEI RUI TE [Suspect]
     Active Substance: TROPISETRON
     Indication: PROPHYLAXIS OF NAUSEA AND VOMITING
     Dosage: 5 MG, 1X/DAY
     Route: 041
     Dates: start: 20191223

REACTIONS (2)
  - Pruritus [Recovered/Resolved]
  - Flushing [Recovered/Resolved]

NARRATIVE: CASE EVENT DATE: 20191225
